FAERS Safety Report 11649880 (Version 2)
Quarter: 2015Q4

REPORT INFORMATION
  Report Type: Spontaneous
  Country: US (occurrence: US)
  Receive Date: 20151021
  Receipt Date: 20151118
  Transmission Date: 20160304
  Serious: Yes (Hospitalization, Other)
  Sender: FDA-Public Use
  Company Number: US-JNJFOC-20151014243

PATIENT
  Age: 66 Year
  Sex: Male

DRUGS (18)
  1. ASPIRIN. [Suspect]
     Active Substance: ASPIRIN
     Indication: PRODUCT USED FOR UNKNOWN INDICATION
     Route: 065
  2. PLAVIX [Suspect]
     Active Substance: CLOPIDOGREL BISULFATE
     Indication: PRODUCT USED FOR UNKNOWN INDICATION
     Route: 065
  3. LANTUS [Concomitant]
     Active Substance: INSULIN GLARGINE
  4. AMLODIPINE [Concomitant]
     Active Substance: AMLODIPINE BESYLATE
  5. XARELTO [Suspect]
     Active Substance: RIVAROXABAN
     Indication: ISCHAEMIC STROKE
     Route: 048
     Dates: start: 20150318, end: 20150328
  6. COUMADIN [Suspect]
     Active Substance: WARFARIN SODIUM
     Indication: PRODUCT USED FOR UNKNOWN INDICATION
     Route: 065
  7. TAMSULOSIN [Concomitant]
     Active Substance: TAMSULOSIN
  8. LATANOPROST. [Concomitant]
     Active Substance: LATANOPROST
  9. NITROSTAT [Concomitant]
     Active Substance: NITROGLYCERIN
  10. XARELTO [Suspect]
     Active Substance: RIVAROXABAN
     Indication: THROMBOSIS PROPHYLAXIS
     Route: 048
     Dates: start: 20150318, end: 20150328
  11. EPIPEN [Concomitant]
     Active Substance: EPINEPHRINE
  12. HYDROCHLOROTHIAZIDE. [Concomitant]
     Active Substance: HYDROCHLOROTHIAZIDE
  13. NOVOLOG [Concomitant]
     Active Substance: INSULIN ASPART
  14. GLIPIZIDE. [Concomitant]
     Active Substance: GLIPIZIDE
  15. IRBESARTAN. [Concomitant]
     Active Substance: IRBESARTAN
  16. ATORVASTATIN [Concomitant]
     Active Substance: ATORVASTATIN
  17. IMDUR [Concomitant]
     Active Substance: ISOSORBIDE MONONITRATE
  18. PROTONEX [Concomitant]

REACTIONS (3)
  - Cerebral haemorrhage [Recovering/Resolving]
  - Gingival bleeding [Recovered/Resolved]
  - Cerebrovascular accident [Unknown]

NARRATIVE: CASE EVENT DATE: 20150320
